FAERS Safety Report 20489223 (Version 1)
Quarter: 2022Q1

REPORT INFORMATION
  Report Type: Spontaneous
  Country: US (occurrence: None)
  Receive Date: 20220217
  Receipt Date: 20220217
  Transmission Date: 20220423
  Serious: Yes (Other)
  Sender: FDA-Public Use
  Company Number: None

PATIENT
  Sex: Female

DRUGS (1)
  1. PROCTOSOL-HC [Suspect]
     Active Substance: HYDROCORTISONE
     Indication: Haemorrhoids

REACTIONS (1)
  - Drug ineffective [None]
